FAERS Safety Report 7118012-6 (Version None)
Quarter: 2010Q4

REPORT INFORMATION
  Report Type: 
  Country: None (occurrence: None)
  Receive Date: 20101123
  Receipt Date: 20101113
  Transmission Date: 20110411
  Serious: Yes (Other)
  Sender: FDA-Public Use
  Company Number: US-ASTRAZENECA-2010SE54456

PATIENT

DRUGS (1)
  1. MERREM [Suspect]

REACTIONS (1)
  - INCORRECT ROUTE OF DRUG ADMINISTRATION [None]
